FAERS Safety Report 9791919 (Version 1)
Quarter: 2014Q1

REPORT INFORMATION
  Report Type: Spontaneous
  Country: US (occurrence: US)
  Receive Date: 20140102
  Receipt Date: 20140102
  Transmission Date: 20141002
  Serious: No
  Sender: FDA-Public Use
  Company Number: US-PFIZER INC-2013374040

PATIENT
  Age: 42 Year
  Sex: Female
  Weight: 107 kg

DRUGS (3)
  1. PRISTIQ [Suspect]
     Indication: DEPRESSION
     Dosage: 50 MG, 1X/DAY
     Route: 048
     Dates: start: 20131122, end: 201312
  2. ADVIL [Suspect]
     Indication: PAIN IN JAW
     Dosage: 200 MG, AS NEEDED
     Dates: start: 20131127
  3. ADVIL [Suspect]
     Indication: HEADACHE

REACTIONS (6)
  - Drug effect incomplete [Unknown]
  - Pain in jaw [Unknown]
  - Joint stiffness [Unknown]
  - Headache [Unknown]
  - Muscle tightness [Unknown]
  - Pain [Unknown]
